FAERS Safety Report 9612474 (Version 2)
Quarter: 2013Q4

REPORT INFORMATION
  Report Type: Spontaneous
  Country: US (occurrence: US)
  Receive Date: 20131010
  Receipt Date: 20131010
  Transmission Date: 20140711
  Serious: Yes (Other)
  Sender: FDA-Public Use
  Company Number: US-SUN PHARMACEUTICAL INDUSTRIES LTD-2013SUN04742

PATIENT
  Sex: 0

DRUGS (3)
  1. ALENDRONATE SODIUM 70MG TABLET [Suspect]
     Indication: OSTEOPOROSIS
     Dosage: 70 MG, ONCE A WEEK
     Route: 048
     Dates: start: 20130914
  2. OXYCODONE [Concomitant]
     Dosage: 30 MG, FIVE TIMES A DAY
  3. PAXIL [Concomitant]

REACTIONS (11)
  - Aphasia [Unknown]
  - Migraine [Unknown]
  - Cough [Unknown]
  - Essential tremor [Not Recovered/Not Resolved]
  - Toothache [Unknown]
  - Thought blocking [Unknown]
  - Dysphonia [Not Recovered/Not Resolved]
  - Abdominal discomfort [Unknown]
  - Malaise [Unknown]
  - Nausea [Recovering/Resolving]
  - Vomiting [Unknown]
